FAERS Safety Report 8574628-1 (Version None)
Quarter: 2012Q3

REPORT INFORMATION
  Report Type: 
  Country: None (occurrence: None)
  Receive Date: 20120807
  Receipt Date: 20120726
  Transmission Date: 20120928
  Serious: Yes (Other)
  Sender: FDA-Public Use
  Company Number: FR-AMGEN-FRASP2012048327

PATIENT
  Age: 17 Year
  Sex: Female

DRUGS (1)
  1. ENBREL [Suspect]
     Indication: PRODUCT USED FOR UNKNOWN INDICATION
     Dosage: 50 MG, WEEKLY
     Route: 058
     Dates: start: 20120121, end: 20120204

REACTIONS (5)
  - CRYING [None]
  - DYSPHORIA [None]
  - INAPPROPRIATE AFFECT [None]
  - AGGRESSION [None]
  - MOOD ALTERED [None]
